FAERS Safety Report 17789193 (Version 1)
Quarter: 2020Q2

REPORT INFORMATION
  Report Type: Spontaneous
  Country: DE (occurrence: DE)
  Receive Date: 20200515
  Receipt Date: 20200515
  Transmission Date: 20200714
  Serious: Yes (Other)
  Sender: FDA-Public Use
  Company Number: DE-UCBSA-2020019991

PATIENT
  Age: 36 Year
  Sex: Female

DRUGS (5)
  1. VALPROATE [Suspect]
     Active Substance: VALPROIC ACID
     Indication: EPILEPSY
     Dosage: 1800 MILLIGRAM/ DAY
  2. LEVETIRACETAM. [Suspect]
     Active Substance: LEVETIRACETAM
     Indication: EPILEPSY
     Dosage: 1200 MILLIGRAM/DAY
  3. OXYTOCIN. [Concomitant]
     Active Substance: OXYTOCIN
     Indication: INDUCED LABOUR
     Dosage: UNK
  4. SULPROSTONE [Concomitant]
     Active Substance: SULPROSTONE
     Indication: INDUCED LABOUR
     Dosage: UNK
  5. MISOPROSTOL. [Concomitant]
     Active Substance: MISOPROSTOL
     Indication: INDUCED LABOUR
     Dosage: UNK

REACTIONS (5)
  - Maternal exposure during pregnancy [Unknown]
  - Bundle branch block right [Recovered/Resolved]
  - Ventricular extrasystoles [Recovered/Resolved]
  - Anaphylactoid syndrome of pregnancy [Recovered/Resolved]
  - Altered state of consciousness [Recovered/Resolved]
